FAERS Safety Report 18180568 (Version 1)
Quarter: 2020Q3

REPORT INFORMATION
  Report Type: Spontaneous
  Country: US (occurrence: US)
  Receive Date: 20200821
  Receipt Date: 20200821
  Transmission Date: 20201103
  Serious: Yes (Death)
  Sender: FDA-Public Use
  Company Number: NVSC2020US230625

PATIENT
  Sex: Female

DRUGS (2)
  1. TAFINLAR [Suspect]
     Active Substance: DABRAFENIB MESYLATE
     Indication: COLON CANCER
     Dosage: 75 MG, Q12H
     Route: 048
     Dates: start: 20190703
  2. MEKINIST [Suspect]
     Active Substance: TRAMETINIB DIMETHYL SULFOXIDE
     Indication: COLON CANCER
     Dosage: 1 MG, QD
     Route: 048
     Dates: start: 20190703

REACTIONS (1)
  - Death [Fatal]
